FAERS Safety Report 19241611 (Version 5)
Quarter: 2022Q2

REPORT INFORMATION
  Report Type: Spontaneous
  Country: JP (occurrence: JP)
  Receive Date: 20210511
  Receipt Date: 20220622
  Transmission Date: 20220720
  Serious: Yes (Other)
  Sender: FDA-Public Use
  Company Number: NVSJ2020JP003827

PATIENT
  Age: 3 Month
  Sex: Male

DRUGS (7)
  1. AFINITOR DISPERZ [Suspect]
     Active Substance: EVEROLIMUS
     Indication: Tuberous sclerosis complex
     Dosage: 0.1 MG
     Route: 048
     Dates: start: 20200316, end: 20200324
  2. AFINITOR DISPERZ [Suspect]
     Active Substance: EVEROLIMUS
     Dosage: 0.2 MG
     Route: 048
     Dates: start: 20200325, end: 20200326
  3. AFINITOR DISPERZ [Suspect]
     Active Substance: EVEROLIMUS
     Dosage: 0.1 MG
     Route: 048
     Dates: start: 202004, end: 202004
  4. AFINITOR DISPERZ [Suspect]
     Active Substance: EVEROLIMUS
     Dosage: 0.2 MG
     Route: 048
     Dates: start: 202004
  5. AFINITOR DISPERZ [Suspect]
     Active Substance: EVEROLIMUS
     Dosage: 0.3 MG
     Route: 048
  6. AFINITOR DISPERZ [Suspect]
     Active Substance: EVEROLIMUS
     Dosage: 0.5 MG
     Route: 048
  7. AFINITOR DISPERZ [Suspect]
     Active Substance: EVEROLIMUS
     Dosage: 0.7 MG
     Route: 048
     Dates: end: 202005

REACTIONS (2)
  - Hypogammaglobulinaemia [Recovered/Resolved]
  - Hypertriglyceridaemia [Recovered/Resolved]

NARRATIVE: CASE EVENT DATE: 20200326
